FAERS Safety Report 16853029 (Version 2)
Quarter: 2021Q1

REPORT INFORMATION
  Report Type: Spontaneous
  Country: US (occurrence: US)
  Receive Date: 20190925
  Receipt Date: 20210310
  Transmission Date: 20210419
  Serious: Yes (Other)
  Sender: FDA-Public Use
  Company Number: US-PURDUE PHARMA-USA-2019-0148330

PATIENT
  Age: 24 Year
  Sex: Male
  Weight: 106.58 kg

DRUGS (1)
  1. OXYCONTIN [Suspect]
     Active Substance: OXYCODONE HYDROCHLORIDE
     Indication: BACK PAIN
     Dosage: 80 MG, UNK
     Route: 048
     Dates: start: 20020201, end: 20030530

REACTIONS (8)
  - Diabetes mellitus [Not Recovered/Not Resolved]
  - Hot flush [Recovered/Resolved]
  - Constipation [Unknown]
  - Drug dependence [Unknown]
  - Emotional distress [Unknown]
  - Nausea [Recovered/Resolved]
  - Organ failure [Not Recovered/Not Resolved]
  - Lethargy [Recovered/Resolved]

NARRATIVE: CASE EVENT DATE: 20020201
